FAERS Safety Report 5709201-3 (Version None)
Quarter: 2008Q2

REPORT INFORMATION
  Report Type: 
  Country: None (occurrence: None)
  Receive Date: 20080418
  Receipt Date: 20080409
  Transmission Date: 20081010
  Serious: Yes (Other)
  Sender: FDA-Public Use
  Company Number: US-JNJFOC-20080402948

PATIENT
  Sex: Male
  Weight: 155.13 kg

DRUGS (4)
  1. REMICADE [Suspect]
     Indication: CROHN'S DISEASE
     Dosage: INFUSIONS FOR 6-7 MONTHS
     Route: 042
  2. DIOVAN [Concomitant]
     Indication: BLOOD PRESSURE
  3. ENTOCORT EC [Concomitant]
     Indication: CROHN'S DISEASE
  4. ZERIT [Concomitant]

REACTIONS (4)
  - HAEMORRHAGE [None]
  - PYREXIA [None]
  - RASH [None]
  - VOMITING [None]
